FAERS Safety Report 9711745 (Version 2)
Quarter: 2013Q4

REPORT INFORMATION
  Report Type: Spontaneous
  Country: US (occurrence: US)
  Receive Date: 20131126
  Receipt Date: 20131126
  Transmission Date: 20140711
  Serious: No
  Sender: FDA-Public Use
  Company Number: US-BRISTOL-MYERS SQUIBB COMPANY-18799262

PATIENT
  Age: 55 Year
  Sex: Male
  Weight: 95.24 kg

DRUGS (5)
  1. BYDUREON [Suspect]
     Indication: TYPE 2 DIABETES MELLITUS
     Route: 058
     Dates: end: 2013
  2. LANTUS [Concomitant]
  3. METFORMIN [Concomitant]
  4. GLIMEPIRIDE [Concomitant]
  5. SIMVASTATIN [Concomitant]

REACTIONS (4)
  - Injection site nodule [Unknown]
  - Drug dose omission [Unknown]
  - Product quality issue [Unknown]
  - Abdominal pain [Recovering/Resolving]
